FAERS Safety Report 5025220-7 (Version None)
Quarter: 2006Q2

REPORT INFORMATION
  Report Type: 
  Country: None (occurrence: None)
  Receive Date: 20060608
  Receipt Date: 20060608
  Transmission Date: 20061013
  Serious: Yes (Hospitalization)
  Sender: FDA-Public Use
  Company Number: None

PATIENT
  Age: 11 Year
  Sex: Male
  Weight: 46.5 kg

DRUGS (6)
  1. ONCASPAR [Suspect]
     Indication: B PRECURSOR TYPE ACUTE LEUKAEMIA
     Dosage: 5325 UNITS 2/27 4/7 , 5/1, 6/5
     Dates: start: 20060227, end: 20060605
  2. K-DUR 10 [Concomitant]
  3. SEPTRA [Concomitant]
  4. GABAPENTIN [Concomitant]
  5. AMLODIPINE [Concomitant]
  6. MERCAPTOPURINE [Concomitant]

REACTIONS (6)
  - AURICULAR SWELLING [None]
  - EYE SWELLING [None]
  - PHARYNGEAL OEDEMA [None]
  - SWELLING FACE [None]
  - TREMOR [None]
  - URTICARIA [None]
